FAERS Safety Report 10708359 (Version 1)
Quarter: 2015Q1

REPORT INFORMATION
  Report Type: Spontaneous
  Country: ES (occurrence: ES)
  Receive Date: 20150113
  Receipt Date: 20150113
  Transmission Date: 20150721
  Serious: Yes (Death)
  Sender: FDA-Public Use
  Company Number: ES-CELGENE-ESP-2014121996

PATIENT

DRUGS (4)
  1. ABRAXANE [Suspect]
     Active Substance: PACLITAXEL
     Indication: PANCREATIC CARCINOMA METASTATIC
     Route: 065
  2. GEMCITABINE [Concomitant]
     Active Substance: GEMCITABINE\GEMCITABINE HYDROCHLORIDE
     Indication: PANCREATIC CARCINOMA METASTATIC
     Route: 065
  3. GEMCITABINE [Concomitant]
     Active Substance: GEMCITABINE\GEMCITABINE HYDROCHLORIDE
     Route: 065
  4. ABRAXANE [Suspect]
     Active Substance: PACLITAXEL
     Route: 065

REACTIONS (10)
  - Neuropathy peripheral [Unknown]
  - Asthenia [Unknown]
  - Diarrhoea [Unknown]
  - Toxicity to various agents [Unknown]
  - Skin toxicity [Unknown]
  - Vomiting [Unknown]
  - Pancreatic carcinoma metastatic [Unknown]
  - Death [Fatal]
  - Neutropenia [Unknown]
  - Anaemia [Unknown]
